FAERS Safety Report 8906241 (Version 1)
Quarter: 2012Q4

REPORT INFORMATION
  Report Type: Spontaneous
  Country: US (occurrence: None)
  Receive Date: 20121112
  Receipt Date: 20121112
  Transmission Date: 20130627
  Serious: Yes (Other)
  Sender: FDA-Public Use
  Company Number: None

PATIENT
  Age: 45 Year
  Sex: Female
  Weight: 81.65 kg

DRUGS (2)
  1. SULFAMETHOXAZOLE\TRIMETHOPRIM [Suspect]
     Indication: URINARY TRACT INFECTION
     Route: 048
     Dates: start: 20121101, end: 20121109
  2. SULFAMETHOXAZOLE\TRIMETHOPRIM [Suspect]
     Indication: EAR INFECTION
     Route: 048
     Dates: start: 20121101, end: 20121109

REACTIONS (2)
  - Rash erythematous [None]
  - Rash pruritic [None]
